FAERS Safety Report 13684428 (Version 1)
Quarter: 2017Q2

REPORT INFORMATION
  Report Type: Spontaneous
  Country: DE (occurrence: DE)
  Receive Date: 20170623
  Receipt Date: 20170623
  Transmission Date: 20170830
  Serious: Yes (Congenital Anomaly, Other)
  Sender: FDA-Public Use
  Company Number: DE-TEVA-778434GER

PATIENT
  Age: 1 Day
  Sex: Male

DRUGS (11)
  1. CITALOPRAM [Suspect]
     Active Substance: CITALOPRAM HYDROBROMIDE
     Indication: BIPOLAR DISORDER
     Dosage: 20 MILLIGRAM DAILY;
     Route: 064
     Dates: start: 20160403, end: 20161217
  2. CALCIUM [Concomitant]
     Active Substance: CALCIUM
     Indication: MINERAL SUPPLEMENTATION
     Dosage: 1200 [MG/D ]/ SINCE 2014. AFTER GASTRIC BYPASS OPERATION
     Route: 064
     Dates: start: 20160403, end: 20161217
  3. VALDOXAN [Suspect]
     Active Substance: AGOMELATINE
     Indication: BIPOLAR DISORDER
     Dosage: 25 MILLIGRAM DAILY;
     Route: 064
     Dates: start: 20160403, end: 20161217
  4. VITAMIN B12 [Concomitant]
     Active Substance: CYANOCOBALAMIN
     Indication: VITAMIN SUPPLEMENTATION
     Dosage: 1000 [MICROG/MONTH ] / SINCE 2014. AFTER GASTRIC BYPASS OPERATION
     Route: 064
  5. FOLIO FORTE [Concomitant]
     Active Substance: FOLIC ACID\VITAMINS
     Indication: PROPHYLAXIS OF NEURAL TUBE DEFECT
     Dosage: .8 MILLIGRAM DAILY;
     Route: 064
  6. OXYTOCIN. [Concomitant]
     Active Substance: OXYTOCIN
     Indication: LABOUR INDUCTION
     Route: 064
     Dates: start: 20161217, end: 20161217
  7. L-THYROXIN [Concomitant]
     Active Substance: LEVOTHYROXINE SODIUM
     Indication: HYPOTHYROIDISM
     Dosage: 150 [MICROG/D ] / 112 MICROG/D UNTIL WEEK 12, THEN 150 MICROG/D
     Route: 064
     Dates: start: 20160403, end: 20161217
  8. IRON [Concomitant]
     Active Substance: IRON
     Indication: MINERAL SUPPLEMENTATION
     Dosage: 50 MILLIGRAM DAILY; 50 [MG/D ]/ SINCE 2014. AFTER GASTRIC BYPASS OPERATION
     Route: 064
     Dates: start: 20160403, end: 20161217
  9. IBUPROFEN. [Concomitant]
     Active Substance: IBUPROFEN
     Indication: PAIN
     Dosage: ON DEMAND
     Route: 064
  10. LAMOTRIGIN [Suspect]
     Active Substance: LAMOTRIGINE
     Indication: BIPOLAR DISORDER
     Dosage: 300 MILLIGRAM DAILY;
     Route: 064
     Dates: start: 20160403, end: 20161217
  11. BEGRIPAL [Concomitant]
     Indication: IMMUNISATION
     Route: 064
     Dates: start: 20160926, end: 20160926

REACTIONS (2)
  - Haemangioma congenital [Recovering/Resolving]
  - Hyperbilirubinaemia neonatal [Recovered/Resolved]

NARRATIVE: CASE EVENT DATE: 20161217
